FAERS Safety Report 6295024-6 (Version None)
Quarter: 2009Q3

REPORT INFORMATION
  Report Type: 
  Country: None (occurrence: None)
  Receive Date: 20090731
  Receipt Date: 20090731
  Transmission Date: 20100115
  Serious: Yes (Life-Threatening, Other)
  Sender: FDA-Public Use
  Company Number: None

PATIENT
  Age: 55 Year
  Sex: Female
  Weight: 106.5953 kg

DRUGS (2)
  1. SINGULAIR [Suspect]
     Indication: ASTHMA
     Dosage: 10 MG 1 PO
     Route: 048
     Dates: start: 20090721, end: 20090730
  2. ADVAIR DISKUS 100/50 [Suspect]
     Indication: ASTHMA
     Dosage: 1 2XDAILY
     Dates: start: 20090721, end: 20090730

REACTIONS (5)
  - DEPRESSION [None]
  - DIZZINESS [None]
  - HEADACHE [None]
  - NEGATIVE THOUGHTS [None]
  - RESPIRATORY DISORDER [None]
